FAERS Safety Report 24191576 (Version 3)
Quarter: 2024Q3

REPORT INFORMATION
  Report Type: Report from Study
  Country: US (occurrence: US)
  Receive Date: 20240808
  Receipt Date: 20240912
  Transmission Date: 20241017
  Serious: Yes (Other)
  Sender: ABBVIE
  Company Number: US-ABBVIE-5866931

PATIENT
  Sex: Female

DRUGS (1)
  1. RINVOQ [Suspect]
     Active Substance: UPADACITINIB
     Indication: Rheumatoid arthritis
     Dosage: FREQUENCY TEXT: UNKNOWN?START DATE TEXT: UNKNOWN
     Route: 048

REACTIONS (7)
  - Knee arthroplasty [Unknown]
  - Gait inability [Recovering/Resolving]
  - Myopathy [Not Recovered/Not Resolved]
  - Arterial disorder [Not Recovered/Not Resolved]
  - Renal disorder [Unknown]
  - Thyroid disorder [Unknown]
  - Gait disturbance [Not Recovered/Not Resolved]

NARRATIVE: CASE EVENT DATE: 20100101
